FAERS Safety Report 19169579 (Version 1)
Quarter: 2021Q2

REPORT INFORMATION
  Report Type: Spontaneous
  Country: US (occurrence: US)
  Receive Date: 20210422
  Receipt Date: 20210422
  Transmission Date: 20210717
  Serious: Yes (Death, Other)
  Sender: FDA-Public Use
  Company Number: US-SA-2021SA131269

PATIENT
  Age: 71 Year
  Sex: Male

DRUGS (1)
  1. ZANTAC [Suspect]
     Active Substance: RANITIDINE HYDROCHLORIDE
     Indication: GASTRIC ULCER
     Dosage: 150 MG, QD
     Dates: start: 198301, end: 201909

REACTIONS (4)
  - Bladder cancer stage IV [Fatal]
  - Renal cancer stage IV [Fatal]
  - Oesophageal carcinoma [Fatal]
  - Gastric cancer stage IV [Fatal]

NARRATIVE: CASE EVENT DATE: 20190201
